FAERS Safety Report 15706861 (Version 2)
Quarter: 2019Q2

REPORT INFORMATION
  Report Type: Spontaneous
  Country: GB (occurrence: GB)
  Receive Date: 20181210
  Receipt Date: 20190503
  Transmission Date: 20190711
  Serious: Yes (Hospitalization)
  Sender: FDA-Public Use
  Company Number: GB-MYLANLABS-2018M1087724

PATIENT
  Age: 51 Year
  Sex: Female

DRUGS (2)
  1. CLOZARIL [Suspect]
     Active Substance: CLOZAPINE
     Indication: SCHIZOPHRENIA
     Dosage: UNK
     Route: 048
     Dates: start: 20070329
  2. CLOZARIL [Suspect]
     Active Substance: CLOZAPINE
     Dosage: 8400 MILLIGRAM
     Route: 048
     Dates: start: 201811

REACTIONS (3)
  - Antipsychotic drug level decreased [Unknown]
  - Anaemia [Unknown]
  - Overdose [Unknown]

NARRATIVE: CASE EVENT DATE: 2018
